FAERS Safety Report 8141637-6 (Version None)
Quarter: 2012Q1

REPORT INFORMATION
  Report Type: 
  Country: None (occurrence: None)
  Receive Date: 20120216
  Receipt Date: 20120209
  Transmission Date: 20120608
  Serious: Yes (Life-Threatening)
  Sender: FDA-Public Use
  Company Number: CN-BRISTOL-MYERS SQUIBB COMPANY-15461841

PATIENT
  Age: 47 Year
  Sex: Male
  Weight: 75 kg

DRUGS (4)
  1. LEUCOVORIN CALCIUM [Suspect]
     Indication: COLORECTAL CANCER METASTATIC
     Dosage: RECENT DOSE-05DEC2010,NO OF INF=15,INTERRUPTD-24DEC10 21MAY10 TO 05DEC10(198D);09JAN11 TO ONG
     Route: 042
     Dates: start: 20100521
  2. CETUXIMAB [Suspect]
     Indication: COLORECTAL CANCER METASTATIC
     Dosage: RECENT DOSE:23DEC10.NO OF INF=16.STR=5MG/ML,INTERRUPTED-24DEC10 21MAY TO 24DEC(216D);09JAN11 TO ONG
     Route: 042
     Dates: start: 20100521
  3. IRINOTECAN HCL [Suspect]
     Indication: COLORECTAL CANCER METASTATIC
     Dosage: RECENT DOSE-05DEC2010.NO OF INF=15.INTERRUPTD-24DEC10 21MAY10 TO 05DEC10(198D);09JAN11 TO ONG
     Route: 042
     Dates: start: 20100521
  4. FLUOROURACIL [Suspect]
     Indication: COLORECTAL CANCER METASTATIC
     Dosage: RECENT DOSE-05DEC2010,NO OF INF=15,INTERRUPTD-24DEC10 21MAY10 TO 05DEC10(198D);09JAN11 TO ONG
     Route: 042
     Dates: start: 20100521

REACTIONS (2)
  - HYPOPHOSPHATAEMIA [None]
  - HYPOKALAEMIA [None]
